FAERS Safety Report 21391613 (Version 3)
Quarter: 2024Q1

REPORT INFORMATION
  Report Type: Spontaneous
  Country: US (occurrence: US)
  Receive Date: 20220929
  Receipt Date: 20240123
  Transmission Date: 20240410
  Serious: Yes (Other)
  Sender: FDA-Public Use
  Company Number: US-PFIZER INC-PV202200072165

PATIENT
  Age: 89 Year
  Sex: Female

DRUGS (1)
  1. VYNDAMAX [Suspect]
     Active Substance: TAFAMIDIS
     Indication: Amyloidosis
     Dosage: 61 MG

REACTIONS (4)
  - Cerebrovascular accident [Unknown]
  - Increased appetite [Unknown]
  - Therapeutic response unexpected [Unknown]
  - Speech disorder [Unknown]
